FAERS Safety Report 20723744 (Version 2)
Quarter: 2022Q2

REPORT INFORMATION
  Report Type: Spontaneous
  Country: TR (occurrence: TR)
  Receive Date: 20220419
  Receipt Date: 20220422
  Transmission Date: 20220721
  Serious: Yes (Death, Hospitalization, Other)
  Sender: FDA-Public Use
  Company Number: TR-CELLTRION INC.-2022TR004690

PATIENT

DRUGS (4)
  1. RITUXIMAB [Suspect]
     Active Substance: RITUXIMAB
     Indication: Transplant rejection
     Dosage: 375 MG/M2, SINGLE
  2. TACROLIMUS [Concomitant]
     Active Substance: TACROLIMUS
  3. MYCOPHENOLATE MOFETIL [Concomitant]
     Active Substance: MYCOPHENOLATE MOFETIL
  4. PREDNISONE [Concomitant]
     Active Substance: PREDNISONE
     Dosage: LOW DOSE

REACTIONS (4)
  - Multiple organ dysfunction syndrome [Fatal]
  - Lung disorder [Fatal]
  - COVID-19 [Unknown]
  - Off label use [Unknown]
